FAERS Safety Report 6846098-2 (Version None)
Quarter: 2010Q3

REPORT INFORMATION
  Report Type: 
  Country: None (occurrence: None)
  Receive Date: 20100715
  Receipt Date: 20080119
  Transmission Date: 20110219
  Serious: No
  Sender: FDA-Public Use
  Company Number: US-PFIZER INC-2007074317

PATIENT
  Sex: Female

DRUGS (6)
  1. CHANTIX [Suspect]
     Indication: SMOKING CESSATION THERAPY
     Route: 048
     Dates: start: 20070806
  2. CARDIOVASCULAR SYSTEM DRUGS [Concomitant]
     Indication: CARDIOVASCULAR DISORDER
  3. TRICOR [Concomitant]
     Indication: BLOOD CHOLESTEROL ABNORMAL
  4. AMLODIPINE [Concomitant]
     Indication: CARDIOVASCULAR DISORDER
  5. VYTORIN [Concomitant]
     Indication: BLOOD CHOLESTEROL ABNORMAL
  6. FEXOFENADINE [Concomitant]
     Indication: MULTIPLE ALLERGIES

REACTIONS (7)
  - ABNORMAL DREAMS [None]
  - DECREASED APPETITE [None]
  - DRUG DOSE OMISSION [None]
  - HEADACHE [None]
  - INSOMNIA [None]
  - NAUSEA [None]
  - WEIGHT INCREASED [None]
